FAERS Safety Report 20216128 (Version 1)
Quarter: 2021Q4

REPORT INFORMATION
  Report Type: Report from Study
  Country: BE (occurrence: BE)
  Receive Date: 20211222
  Receipt Date: 20211222
  Transmission Date: 20220303
  Serious: Yes (Hospitalization)
  Sender: FDA-Public Use
  Company Number: BE-ROCHE-2943750

PATIENT
  Age: 76 Year
  Sex: Male
  Weight: 109 kg

DRUGS (31)
  1. CARBOPLATIN [Suspect]
     Active Substance: CARBOPLATIN
     Indication: Non-small cell lung cancer
     Dosage: 670MILLIGRAM
     Route: 065
     Dates: start: 20210722
  2. ETOPOSIDE [Suspect]
     Active Substance: ETOPOSIDE
     Indication: Non-small cell lung cancer
     Dosage: 312MILLIGRAM
     Route: 065
     Dates: start: 20210722
  3. ATEZOLIZUMAB [Suspect]
     Active Substance: ATEZOLIZUMAB
     Indication: Non-small cell lung cancer
     Dosage: START DATE OF MOST RECENT DOSE OF STUDY DRUGPRIOR TO AE/ SAE 30/JUN/2021,UNIT DOSE:1200MILLIGRAM
     Route: 042
     Dates: start: 20210722
  4. DEXTROSE [Concomitant]
     Active Substance: DEXTROSE
     Dates: start: 20210613, end: 20210716
  5. KCL [Concomitant]
     Active Substance: POTASSIUM CHLORIDE
     Indication: Neutrophil count decreased
     Dates: start: 20210713, end: 20210713
  6. MOVICOL [Concomitant]
     Active Substance: POLYETHYLENE GLYCOL 3350\POTASSIUM CHLORIDE\SODIUM BICARBONATE\SODIUM CHLORIDE
     Indication: Neutrophil count decreased
     Dates: start: 20210715, end: 20210717
  7. MOVICOL [Concomitant]
     Active Substance: POLYETHYLENE GLYCOL 3350\POTASSIUM CHLORIDE\SODIUM BICARBONATE\SODIUM CHLORIDE
     Dates: start: 20210620, end: 20210708
  8. PALONOSETRON [Concomitant]
     Active Substance: PALONOSETRON
     Dosage: 0.5MILLIGRAM
     Dates: start: 20210630, end: 20210630
  9. OXYGEN [Concomitant]
     Active Substance: OXYGEN
     Dates: start: 202106
  10. BUMETANIDE [Concomitant]
     Active Substance: BUMETANIDE
     Dates: start: 20210707, end: 20210715
  11. BUMETANIDE [Concomitant]
     Active Substance: BUMETANIDE
     Dates: start: 20210701, end: 20210706
  12. METFORMIN [Concomitant]
     Active Substance: METFORMIN HYDROCHLORIDE
     Dates: start: 20210712
  13. MAGNESIUM SULFATE [Concomitant]
     Active Substance: MAGNESIUM SULFATE
     Dates: start: 20210713, end: 20210713
  14. LIPEGFILGRASTIM [Concomitant]
     Active Substance: LIPEGFILGRASTIM
     Indication: Neutrophil count decreased
     Dates: start: 20210716, end: 20210716
  15. KALIUM [POTASSIUM CHLORIDE] [Concomitant]
     Dates: start: 20210716, end: 20210726
  16. STEROP K [Concomitant]
     Dates: start: 20210707, end: 20210707
  17. STEROP K [Concomitant]
     Dates: start: 20210717, end: 20210718
  18. SPIRONOLACTONE [Concomitant]
     Active Substance: SPIRONOLACTONE
     Dates: start: 20210701
  19. POTASSIUM [Concomitant]
     Active Substance: POTASSIUM
     Dates: start: 20210712, end: 20210712
  20. PIPERACILLIN SODIUM\TAZOBACTAM SODIUM [Concomitant]
     Active Substance: PIPERACILLIN SODIUM\TAZOBACTAM SODIUM
     Dates: start: 20210712, end: 20210712
  21. MORPHINE [Concomitant]
     Active Substance: MORPHINE
     Dates: start: 20210705, end: 20210705
  22. FOLIC ACID [Concomitant]
     Active Substance: FOLIC ACID
     Dates: start: 20210629
  23. ENOXAPARIN SODIUM [Concomitant]
     Active Substance: ENOXAPARIN SODIUM
     Indication: Cardiovascular event prophylaxis
     Dates: start: 20210624, end: 20210703
  24. ENOXAPARIN SODIUM [Concomitant]
     Active Substance: ENOXAPARIN SODIUM
     Indication: Cardiovascular event prophylaxis
     Dates: start: 20210704, end: 20210705
  25. ACTRAPID [Concomitant]
     Active Substance: INSULIN HUMAN
     Dates: start: 20210618
  26. DEXAMETHASONE [Concomitant]
     Active Substance: DEXAMETHASONE
     Dosage: 10MILLIGRAM
     Dates: start: 20210630, end: 20210630
  27. JARDIANCE [Concomitant]
     Active Substance: EMPAGLIFLOZIN
     Dates: start: 20180627
  28. ATROVENT [Concomitant]
     Active Substance: IPRATROPIUM BROMIDE
     Dates: start: 20210623
  29. STEOVIT FORTE [Concomitant]
     Dates: start: 20210618
  30. NETUPITANT [Concomitant]
     Active Substance: NETUPITANT
     Dosage: 300MILLIGRAM
     Dates: start: 20210630, end: 20210630
  31. ACETYLCYSTEINE [Concomitant]
     Active Substance: ACETYLCYSTEINE
     Dates: start: 20210623

REACTIONS (1)
  - Neutrophil count decreased [Recovered/Resolved]
